FAERS Safety Report 20421135 (Version 3)
Quarter: 2022Q2

REPORT INFORMATION
  Report Type: Spontaneous
  Country: JP (occurrence: JP)
  Receive Date: 20220203
  Receipt Date: 20220403
  Transmission Date: 20220721
  Serious: Yes (Hospitalization, Other)
  Sender: FDA-Public Use
  Company Number: JP-002147023-NVSC2022JP002042

PATIENT
  Age: 72 Year
  Sex: Male

DRUGS (4)
  1. OXALIPLATIN [Suspect]
     Active Substance: OXALIPLATIN
     Indication: Rectal cancer stage IV
     Dosage: 130 MG/M2, QD, FOR 21 DAYS ON DAY 1
  2. OXALIPLATIN [Suspect]
     Active Substance: OXALIPLATIN
     Indication: Metastases to liver
  3. CAPECITABINE [Suspect]
     Active Substance: CAPECITABINE
     Indication: Rectal cancer stage IV
     Dosage: 2000 MG/M2, QD
     Route: 048
  4. CAPECITABINE [Suspect]
     Active Substance: CAPECITABINE
     Indication: Metastases to liver
     Dosage: REDUCED TO 1,500 MG/M2/DAY FROM THE 6TH COURSE
     Route: 048

REACTIONS (9)
  - Hyperammonaemia [Recovered/Resolved]
  - Asthenia [Recovered/Resolved]
  - Dysarthria [Recovered/Resolved]
  - Gait disturbance [Recovered/Resolved]
  - Splenorenal shunt [Recovered/Resolved]
  - Urinary incontinence [Recovered/Resolved]
  - Venoocclusive liver disease [Unknown]
  - Portal hypertension [Unknown]
  - Palmar-plantar erythrodysaesthesia syndrome [Unknown]
